FAERS Safety Report 5235803-7 (Version None)
Quarter: 2007Q1

REPORT INFORMATION
  Report Type: 
  Country: None (occurrence: None)
  Receive Date: 20070212
  Receipt Date: 20070130
  Transmission Date: 20070707
  Serious: Yes (Hospitalization, Other)
  Sender: FDA-Public Use
  Company Number: JP-MERCK-0511USA01430

PATIENT
  Age: 48 Year
  Sex: Male
  Weight: 60 kg

DRUGS (12)
  1. THEOLONG [Concomitant]
     Route: 048
  2. SINGULAIR [Suspect]
     Indication: ASTHMA
     Route: 048
     Dates: start: 20040315, end: 20040615
  3. SINGULAIR [Suspect]
     Route: 048
     Dates: start: 20040315, end: 20040615
  4. MUCODYNE [Concomitant]
     Indication: PRODUCTIVE COUGH
     Route: 048
     Dates: start: 20031028
  5. MUCODYNE [Concomitant]
     Indication: SPUTUM RETENTION
     Route: 048
     Dates: start: 20031028
  6. MUCOSOLVAN [Concomitant]
     Indication: PRODUCTIVE COUGH
     Route: 048
     Dates: start: 20030415
  7. MUCOSOLVAN [Concomitant]
     Indication: SPUTUM RETENTION
     Route: 048
     Dates: start: 20030415
  8. SEREVENT [Concomitant]
     Indication: ASTHMA
     Dates: start: 20031028
  9. FLUTICASONE PROPIONATE [Concomitant]
     Indication: ASTHMA
     Dates: start: 20031028
  10. THEO-DUR [Concomitant]
     Indication: ASTHMA
     Route: 048
     Dates: start: 20011022
  11. FAMOTIDINE [Concomitant]
     Indication: GASTRITIS
     Route: 048
     Dates: start: 20040517
  12. PRANLUKAST [Suspect]
     Route: 065
     Dates: start: 20030901, end: 20040301

REACTIONS (3)
  - ALLERGIC GRANULOMATOUS ANGIITIS [None]
  - NO THERAPEUTIC RESPONSE [None]
  - PNEUMONIA [None]
